FAERS Safety Report 21634771 (Version 1)
Quarter: 2022Q4

REPORT INFORMATION
  Report Type: Report from Study
  Country: US (occurrence: US)
  Receive Date: 20221123
  Receipt Date: 20221123
  Transmission Date: 20230113
  Serious: Yes (Other)
  Sender: FDA-Public Use
  Company Number: US-ABBVIE-22K-163-4534582-00

PATIENT
  Sex: Male

DRUGS (1)
  1. IMBRUVICA [Suspect]
     Active Substance: IBRUTINIB
     Indication: Chronic lymphocytic leukaemia
     Dosage: FIRST ADMIN DATE-20 JUL 2022
     Route: 048

REACTIONS (9)
  - Skin cancer [Unknown]
  - White blood cell count increased [Recovered/Resolved]
  - Blister [Unknown]
  - Dry skin [Unknown]
  - Photosensitivity reaction [Unknown]
  - Increased appetite [Unknown]
  - Weight increased [Unknown]
  - Red blood cell count decreased [Unknown]
  - Increased tendency to bruise [Not Recovered/Not Resolved]

NARRATIVE: CASE EVENT DATE: 20220101
